FAERS Safety Report 19637082 (Version 1)
Quarter: 2021Q3

REPORT INFORMATION
  Report Type: Spontaneous
  Country: CA (occurrence: US)
  Receive Date: 20210729
  Receipt Date: 20210729
  Transmission Date: 20211014
  Serious: No
  Sender: FDA-Public Use
  Company Number: US-JACOBUS PHARMACEUTICAL COMPANY, INC.-2114431

PATIENT
  Age: 74 Year
  Sex: Female

DRUGS (1)
  1. RUZURGI [Suspect]
     Active Substance: AMIFAMPRIDINE
     Indication: MYASTHENIC SYNDROME
     Route: 048

REACTIONS (5)
  - Balance disorder [Unknown]
  - Paraesthesia oral [Unknown]
  - Rhinorrhoea [Unknown]
  - Vision blurred [Unknown]
  - Feeling cold [Unknown]
